FAERS Safety Report 10648646 (Version 1)
Quarter: 2014Q4

REPORT INFORMATION
  Report Type: Spontaneous
  Country: US (occurrence: None)
  Receive Date: 20141205
  Receipt Date: 20141205
  Transmission Date: 20150529
  Serious: No
  Sender: FDA-Public Use
  Company Number: USA-2014111595

PATIENT
  Age: 66 Year
  Sex: Female

DRUGS (1)
  1. POMALYST [Suspect]
     Active Substance: POMALIDOMIDE
     Indication: NEOPLASM MALIGNANT
     Dosage: 1.5 MEQ,  21 IN 28 D, PO
     Route: 048
     Dates: start: 20140916

REACTIONS (3)
  - Gingival pain [None]
  - Oral herpes [None]
  - Glossodynia [None]

NARRATIVE: CASE EVENT DATE: 201410
